FAERS Safety Report 17994319 (Version 3)
Quarter: 2021Q2

REPORT INFORMATION
  Report Type: Spontaneous
  Country: US (occurrence: US)
  Receive Date: 20200708
  Receipt Date: 20210611
  Transmission Date: 20210717
  Serious: No
  Sender: FDA-Public Use
  Company Number: US-PFIZER INC-2020262119

PATIENT
  Age: 82 Year
  Sex: Female

DRUGS (3)
  1. IBRANCE [Suspect]
     Active Substance: PALBOCICLIB
     Dosage: 100 MG
     Dates: start: 20190704
  2. IBRANCE [Suspect]
     Active Substance: PALBOCICLIB
     Dosage: 100 MG
     Dates: start: 20210312
  3. IBRANCE [Suspect]
     Active Substance: PALBOCICLIB
     Dosage: 100 MG
     Dates: start: 20190328

REACTIONS (8)
  - Gingival pain [Unknown]
  - Pruritus [Unknown]
  - Solar lentigo [Recovering/Resolving]
  - Fatigue [Unknown]
  - White blood cell count decreased [Unknown]
  - Dry mouth [Unknown]
  - Alopecia [Unknown]
  - Oral pain [Unknown]
